FAERS Safety Report 6710163-0 (Version None)
Quarter: 2010Q2

REPORT INFORMATION
  Report Type: 
  Country: None (occurrence: None)
  Receive Date: 20100504
  Receipt Date: 20100426
  Transmission Date: 20101027
  Serious: Yes (Hospitalization, Other)
  Sender: FDA-Public Use
  Company Number: GB-BRISTOL-MYERS SQUIBB COMPANY-15077183

PATIENT
  Age: 84 Year
  Sex: Male

DRUGS (2)
  1. WARFARIN SODIUM [Suspect]
     Indication: PULMONARY EMBOLISM
  2. ANTIHYPERTENSIVE [Suspect]

REACTIONS (4)
  - ANGLE CLOSURE GLAUCOMA [None]
  - CHOROIDAL HAEMORRHAGE [None]
  - HYPERTENSION [None]
  - VISUAL ACUITY REDUCED [None]
